FAERS Safety Report 4377082-9 (Version None)
Quarter: 2004Q2

REPORT INFORMATION
  Report Type: 
  Country: None (occurrence: None)
  Receive Date: 20040614
  Receipt Date: 20040604
  Transmission Date: 20050107
  Serious: Yes (Hospitalization)
  Sender: FDA-Public Use
  Company Number: FR-MERCK-0406FRA00033

PATIENT
  Age: 59 Year
  Sex: Male

DRUGS (6)
  1. AMOXICILLIN [Concomitant]
     Route: 048
     Dates: start: 20031014, end: 20031019
  2. ASPIRIN LYSINE [Suspect]
     Route: 048
     Dates: end: 20031009
  3. ENOXAPARIN SODIUM [Concomitant]
     Route: 058
     Dates: start: 20031009, end: 20031107
  4. FLUINDIONE [Suspect]
     Route: 048
     Dates: start: 19980101, end: 20031009
  5. GLYBURIDE [Concomitant]
     Indication: DIABETES MELLITUS NON-INSULIN-DEPENDENT
     Route: 048
  6. VIOXX [Suspect]
     Indication: OSTEOARTHRITIS
     Route: 048
     Dates: start: 20030715, end: 20031017

REACTIONS (3)
  - ANAEMIA [None]
  - DUODENITIS [None]
  - GASTRITIS [None]
